FAERS Safety Report 7819130-7 (Version None)
Quarter: 2011Q4

REPORT INFORMATION
  Report Type: 
  Country: None (occurrence: None)
  Receive Date: 20111018
  Receipt Date: 20111010
  Transmission Date: 20120403
  Serious: Yes (Hospitalization)
  Sender: FDA-Public Use
  Company Number: PHHY2011GB89222

PATIENT
  Age: 54 Year
  Sex: Male

DRUGS (11)
  1. METFORMIN HYDROCHLORIDE [Suspect]
     Indication: TYPE 2 DIABETES MELLITUS
     Dosage: 2 G, DAILY
  2. EXENATIDE [Suspect]
     Dosage: 5 UG, DAULY
  3. PREGABALIN [Concomitant]
  4. AMITRIPTYLINE HCL [Concomitant]
  5. QUININE SULFATE [Concomitant]
  6. GLICLAZIDE [Suspect]
     Indication: TYPE 2 DIABETES MELLITUS
     Dosage: 320 MG, DAILY
  7. ASPIRIN [Concomitant]
  8. ROSUVASTATIN [Concomitant]
  9. LEVOTHYROXINE SODIUM [Concomitant]
  10. CANDESARTAN CILEXETIL [Suspect]
     Dosage: UNK
  11. EXENATIDE [Suspect]
     Dosage: 10 UG, DAILU

REACTIONS (4)
  - MALAISE [None]
  - RENAL FAILURE ACUTE [None]
  - HYPOPHAGIA [None]
  - NAUSEA [None]
